FAERS Safety Report 15180342 (Version 2)
Quarter: 2018Q3

REPORT INFORMATION
  Report Type: Spontaneous
  Country: US (occurrence: US)
  Receive Date: 20180723
  Receipt Date: 20180906
  Transmission Date: 20181010
  Serious: No
  Sender: FDA-Public Use
  Company Number: US-JNJFOC-20180713266

PATIENT
  Age: 74 Year
  Sex: Male

DRUGS (4)
  1. IMODIUM [Suspect]
     Active Substance: LOPERAMIDE HYDROCHLORIDE
     Indication: FREQUENT BOWEL MOVEMENTS
     Route: 048
  2. FLAGYL [Concomitant]
     Active Substance: METRONIDAZOLE\METRONIDAZOLE HYDROCHLORIDE
     Route: 048
     Dates: start: 201807
  3. IMURAN [Concomitant]
     Active Substance: AZATHIOPRINE
     Route: 048
     Dates: start: 2017
  4. IMODIUM [Suspect]
     Active Substance: LOPERAMIDE HYDROCHLORIDE
     Route: 048

REACTIONS (5)
  - Weight decreased [Unknown]
  - Bronchitis [Unknown]
  - Incorrect dose administered [Unknown]
  - Off label use [Unknown]
  - Fatigue [Unknown]
